FAERS Safety Report 7176744-8 (Version None)
Quarter: 2010Q4

REPORT INFORMATION
  Report Type: 
  Country: None (occurrence: None)
  Receive Date: 20101216
  Receipt Date: 20101216
  Transmission Date: 20110411
  Serious: No
  Sender: FDA-Public Use
  Company Number: None

PATIENT
  Age: 24 Year
  Sex: Male
  Weight: 70.3075 kg

DRUGS (3)
  1. DEXTROAMPHETAMINE [Suspect]
     Indication: ATTENTION DEFICIT/HYPERACTIVITY DISORDER
     Dosage: 5MG BID PO
     Route: 048
     Dates: start: 20100301, end: 20101115
  2. DEXTROAMPHETAMINE [Suspect]
     Indication: DEPRESSION
     Dosage: 5MG BID PO
     Route: 048
     Dates: start: 20100301, end: 20101115
  3. ZOLPIDEM [Suspect]
     Indication: SLEEP DISORDER
     Dosage: 10MG PO
     Route: 048
     Dates: start: 20100823, end: 20101115

REACTIONS (6)
  - ANXIETY [None]
  - HYPERTENSION [None]
  - PALPITATIONS [None]
  - PUPILS UNEQUAL [None]
  - VISION BLURRED [None]
  - VISUAL IMPAIRMENT [None]
